FAERS Safety Report 5530378-7 (Version None)
Quarter: 2007Q4

REPORT INFORMATION
  Report Type: 
  Country: None (occurrence: None)
  Receive Date: 20071127
  Receipt Date: 20071115
  Transmission Date: 20080405
  Serious: Yes (Hospitalization)
  Sender: FDA-Public Use
  Company Number: 2007SP023136

PATIENT
  Age: 76 Year
  Sex: Female

DRUGS (2)
  1. TEMODAL [Suspect]
     Indication: GLIOBLASTOMA
     Dosage: 75 MG/M2;QD;
     Dates: start: 20070508, end: 20070621
  2. FORTECORTIN [Concomitant]

REACTIONS (2)
  - BALANCE DISORDER [None]
  - HYDROCEPHALUS [None]
